FAERS Safety Report 23749818 (Version 2)
Quarter: 2024Q3

REPORT INFORMATION
  Report Type: Report from Study
  Country: US (occurrence: US)
  Receive Date: 20240417
  Receipt Date: 20240822
  Transmission Date: 20241016
  Serious: Yes (Other)
  Sender: JAZZ
  Company Number: US-JAZZ PHARMACEUTICALS-2023-US-009251

PATIENT
  Sex: Female

DRUGS (19)
  1. XYWAV [Suspect]
     Active Substance: CALCIUM OXYBATE\MAGNESIUM OXYBATE\POTASSIUM OXYBATE\SODIUM OXYBATE
     Indication: Narcolepsy
     Dosage: UNK
     Route: 048
  2. XYWAV [Suspect]
     Active Substance: CALCIUM OXYBATE\MAGNESIUM OXYBATE\POTASSIUM OXYBATE\SODIUM OXYBATE
     Indication: Cataplexy
     Dosage: 4.5 GRAM, BID BEDTIME
  3. XYWAV [Suspect]
     Active Substance: CALCIUM OXYBATE\MAGNESIUM OXYBATE\POTASSIUM OXYBATE\SODIUM OXYBATE
     Dosage: 4.25 GRAM, BID, (4.5 G 2.5 TO 4 HOURS LATER)
     Dates: start: 20230627
  4. LEVETIRACETAM [Concomitant]
     Active Substance: LEVETIRACETAM
     Dosage: UNK 500 MG BID FOR EPILEPSY
     Dates: start: 20160301
  5. LEVETIRACETAM [Concomitant]
     Active Substance: LEVETIRACETAM
     Dosage: UNK, BID 1 TABLET 11 REFILLS
     Route: 048
     Dates: start: 20230621
  6. BUPROPION HCL SANDOZ RETARD [Concomitant]
     Dosage: UNK
     Route: 048
     Dates: start: 20210801
  7. BUPROPION HCL SANDOZ RETARD [Concomitant]
     Dosage: BID, 3 REFILE
     Route: 048
     Dates: start: 20230627
  8. HYDROCHLOROTHIAZIDE [Concomitant]
     Active Substance: HYDROCHLOROTHIAZIDE
     Dosage: UNK
     Dates: start: 20210601
  9. HYDROCHLOROTHIAZIDE [Concomitant]
     Active Substance: HYDROCHLOROTHIAZIDE
     Dosage: 1 TABLET DAILY 3 REFILLS
     Route: 048
     Dates: start: 20230627
  10. EPINEPHRINE [Concomitant]
     Active Substance: EPINEPHRINE
     Dosage: 0.3 MG =1EA, IM, AS INDICATED PRN, 1 SYRINGE  AS DIRECTED
     Route: 030
     Dates: start: 20230627, end: 20230627
  11. GUAIFENESIN [Concomitant]
     Active Substance: GUAIFENESIN
     Dosage: 100MG/5ML LIQUID
     Route: 048
     Dates: start: 20230118
  12. HYDROCORTISONE [Concomitant]
     Active Substance: HYDROCORTISONE\HYDROCORTISONE ACETATE
     Dosage: OINT 2.5% BID PRN AS DIRECTED AS NEEDED AFFECTED AREA OF SEBORRHEIC DERMATITIS TOPICAL
     Dates: start: 20230118
  13. LEVONORGESTREL [Concomitant]
     Active Substance: LEVONORGESTREL
     Dosage: 52 MG=1 EA
     Dates: start: 20230118
  14. MODAFINIL [Concomitant]
     Active Substance: MODAFINIL
     Dosage: UNK, BID 28 DAYS SUPPLY, 5 REFILLS
     Route: 048
     Dates: start: 20230504
  15. OMEPRAZOLE [Concomitant]
     Active Substance: OMEPRAZOLE
     Dosage: UNK, BID PRN TAKE ON AN EMPTY STOMACH APPROXIMATELY  30 MINUTES PRIOR TO MEAL, AS NEEDED 3 REFILLS
     Route: 048
     Dates: start: 20230627
  16. HERBALS\TURMERIC [Concomitant]
     Active Substance: HERBALS\TURMERIC
     Dosage: UNK
     Dates: start: 20230118
  17. VITAMIN D3 [Concomitant]
     Active Substance: CHOLECALCIFEROL
     Dosage: UNK 1 CAPSULE QD
     Route: 048
     Dates: start: 20230118
  18. ZYRTEC [Concomitant]
     Active Substance: CETIRIZINE HYDROCHLORIDE
     Dosage: QD 1 TABLET, 3 REFILLS
     Route: 048
     Dates: start: 20230627
  19. DIAZEPAM [Concomitant]
     Active Substance: DIAZEPAM
     Indication: Product used for unknown indication
     Dosage: UNK
     Dates: start: 20150529

REACTIONS (5)
  - Seizure [Unknown]
  - Illness [Unknown]
  - COVID-19 [Unknown]
  - Dyspnoea [Unknown]
  - Myopia [Unknown]
